FAERS Safety Report 11607149 (Version 2)
Quarter: 2015Q4

REPORT INFORMATION
  Report Type: Report from Study
  Country: FR (occurrence: FR)
  Receive Date: 20151007
  Receipt Date: 20151011
  Transmission Date: 20160304
  Serious: Yes (Death, Hospitalization)
  Sender: FDA-Public Use
  Company Number: PHHY2015FR119797

PATIENT
  Age: 55 Year
  Sex: Male
  Weight: 64 kg

DRUGS (4)
  1. CERTICAN [Suspect]
     Active Substance: EVEROLIMUS
     Indication: LIVER TRANSPLANT
     Dosage: 7 MG, UNK
     Route: 048
     Dates: start: 20140224
  2. CERTICAN [Suspect]
     Active Substance: EVEROLIMUS
     Indication: PROPHYLAXIS AGAINST TRANSPLANT REJECTION
  3. MYFORTIC [Suspect]
     Active Substance: MYCOPHENOLATE SODIUM
     Indication: LIVER TRANSPLANT
     Dosage: 360 MG, UNK
     Route: 048
     Dates: start: 20140224
  4. CERTICAN [Suspect]
     Active Substance: EVEROLIMUS
     Indication: IMMUNOSUPPRESSION

REACTIONS (3)
  - Sepsis [Fatal]
  - Product use issue [Unknown]
  - Anastomotic stenosis [Not Recovered/Not Resolved]

NARRATIVE: CASE EVENT DATE: 20140723
